FAERS Safety Report 17787032 (Version 12)
Quarter: 2022Q3

REPORT INFORMATION
  Report Type: Spontaneous
  Country: CA (occurrence: CA)
  Receive Date: 20200514
  Receipt Date: 20220824
  Transmission Date: 20221027
  Serious: Yes (Other)
  Sender: FDA-Public Use
  Company Number: CA-PFIZER INC-2019162412

PATIENT
  Age: 36 Year
  Sex: Male

DRUGS (17)
  1. XELJANZ [Suspect]
     Active Substance: TOFACITINIB CITRATE
     Indication: Colitis ulcerative
     Dosage: 10 MG, TWICE DAILY
     Route: 048
     Dates: start: 20190306, end: 201906
  2. XELJANZ [Suspect]
     Active Substance: TOFACITINIB CITRATE
     Dosage: 10 MG, 1X/DAY
     Route: 048
     Dates: start: 201906, end: 2019
  3. XELJANZ [Suspect]
     Active Substance: TOFACITINIB CITRATE
     Dosage: UNK
     Route: 048
     Dates: start: 20190906
  4. XELJANZ [Suspect]
     Active Substance: TOFACITINIB CITRATE
     Dosage: 10 MG, 2X/DAY
     Route: 048
     Dates: start: 2019
  5. XELJANZ [Suspect]
     Active Substance: TOFACITINIB CITRATE
     Dosage: 5 MG, 2X/DAY
     Route: 048
     Dates: end: 202003
  6. XELJANZ [Suspect]
     Active Substance: TOFACITINIB CITRATE
     Dosage: 10 MG, 2X/DAY
     Route: 048
     Dates: start: 202003, end: 202003
  7. XELJANZ [Suspect]
     Active Substance: TOFACITINIB CITRATE
     Dosage: 30 MG, DAILY (10 MG AT AM AND 20 MG AT PM)
     Route: 048
     Dates: start: 20200329, end: 20200329
  8. XELJANZ [Suspect]
     Active Substance: TOFACITINIB CITRATE
     Dosage: 1 DF,10 MG AM AND 20 MG PM
     Route: 048
     Dates: start: 20200329, end: 20200329
  9. XELJANZ [Suspect]
     Active Substance: TOFACITINIB CITRATE
     Dosage: 10 MG, 2X/DAY
     Route: 048
     Dates: start: 20200330, end: 2021
  10. XELJANZ [Suspect]
     Active Substance: TOFACITINIB CITRATE
     Dosage: 10 MG, 1X/DAY
     Route: 048
     Dates: start: 2021
  11. XELJANZ [Suspect]
     Active Substance: TOFACITINIB CITRATE
     Dosage: 10 MG, 2X/DAY
     Route: 048
     Dates: start: 2021, end: 20220817
  12. AZATHIOPRINE [Concomitant]
     Active Substance: AZATHIOPRINE
     Dosage: UNK
  13. AZATHIOPRINE [Concomitant]
     Active Substance: AZATHIOPRINE
     Dosage: 1 DF
  14. CORTISONE [Concomitant]
     Active Substance: CORTISONE
     Dosage: UNK
  15. CORTISONE [Concomitant]
     Active Substance: CORTISONE
     Dosage: 1 DF
  16. PREDNISONE [Concomitant]
     Active Substance: PREDNISONE
     Dosage: UNK
     Route: 065
     Dates: end: 201904
  17. HUMIRA [Concomitant]
     Active Substance: ADALIMUMAB
     Dosage: UNK

REACTIONS (24)
  - Pancreatitis [Unknown]
  - Condition aggravated [Unknown]
  - Diarrhoea haemorrhagic [Not Recovered/Not Resolved]
  - Acne [Unknown]
  - Constipation [Recovered/Resolved]
  - Diarrhoea [Unknown]
  - Stress [Unknown]
  - Abdominal pain upper [Unknown]
  - Middle insomnia [Not Recovered/Not Resolved]
  - Hyperhidrosis [Not Recovered/Not Resolved]
  - Fatigue [Not Recovered/Not Resolved]
  - Sleep disorder [Not Recovered/Not Resolved]
  - COVID-19 [Unknown]
  - Mucous stools [Not Recovered/Not Resolved]
  - Abdominal pain [Not Recovered/Not Resolved]
  - Food craving [Not Recovered/Not Resolved]
  - Night sweats [Not Recovered/Not Resolved]
  - COVID-19 [Unknown]
  - Exposure to SARS-CoV-2 [Unknown]
  - Therapeutic product effect incomplete [Unknown]
  - Incorrect dose administered [Unknown]
  - Product dose omission in error [Unknown]
  - Product prescribing error [Unknown]
  - Intentional product misuse [Unknown]

NARRATIVE: CASE EVENT DATE: 20190101
